FAERS Safety Report 20201078 (Version 2)
Quarter: 2022Q1

REPORT INFORMATION
  Report Type: Report from Study
  Country: AU (occurrence: AU)
  Receive Date: 20211217
  Receipt Date: 20220208
  Transmission Date: 20220423
  Serious: No
  Sender: FDA-Public Use
  Company Number: AU-KARYOPHARM-2021KPT001515

PATIENT

DRUGS (4)
  1. SELINEXOR [Suspect]
     Active Substance: SELINEXOR
     Indication: Plasma cell myeloma
     Dosage: 20 MG, 2X/WEEK
     Route: 048
     Dates: start: 20211115
  2. ONDANSETRON HYDROCHLORIDE [Concomitant]
     Active Substance: ONDANSETRON HYDROCHLORIDE
     Indication: Antiemetic supportive care
     Dosage: 8 MG, TDS
     Route: 048
  3. OLANZAPINE [Concomitant]
     Active Substance: OLANZAPINE
     Indication: Antiemetic supportive care
     Dosage: 2.5 MG, NOCTE
  4. MAXOLON [Concomitant]
     Active Substance: METOCLOPRAMIDE HYDROCHLORIDE
     Indication: Antiemetic supportive care
     Dosage: 10 MG, TID

REACTIONS (2)
  - Nausea [Recovered/Resolved]
  - Weight decreased [Unknown]

NARRATIVE: CASE EVENT DATE: 20211101
